FAERS Safety Report 7005758-3 (Version None)
Quarter: 2010Q3

REPORT INFORMATION
  Report Type: 
  Country: None (occurrence: None)
  Receive Date: 20100921
  Receipt Date: 20100907
  Transmission Date: 20110219
  Serious: Yes (Other)
  Sender: FDA-Public Use
  Company Number: AU-ELI_LILLY_AND_COMPANY-AU201009001961

PATIENT
  Age: 54 Year
  Sex: Female
  Weight: 79.093 kg

DRUGS (4)
  1. GEMCITABINE HCL [Suspect]
     Indication: SMALL CELL LUNG CANCER STAGE UNSPECIFIED
     Dosage: 779 MG, 3/W
     Route: 042
     Dates: start: 20090812, end: 20091028
  2. OTHER PHARMA COMPANY INV DRUG [Suspect]
     Indication: SMALL CELL LUNG CANCER STAGE UNSPECIFIED
     Dosage: 180 MG, DAY2 CYCLE ONE ONWARD, 24 HOURS INFUSION EACH 3 WEEKS CYCLE
     Route: 042
     Dates: start: 20090729, end: 20091029
  3. ETOPOSIDE [Concomitant]
     Indication: SMALL CELL LUNG CANCER STAGE UNSPECIFIED
     Dosage: 86 MG, FOR 3 DAYS EVERY 4 WEEKS
     Route: 042
     Dates: start: 20100329, end: 20100526
  4. CARBOPLATIN [Concomitant]
     Indication: SMALL CELL LUNG CANCER STAGE UNSPECIFIED
     Dosage: 280MG EVERY 4 WEEKS
     Route: 042
     Dates: start: 20100329, end: 20100524

REACTIONS (1)
  - ACUTE MYELOID LEUKAEMIA [None]
